FAERS Safety Report 6785762-0 (Version None)
Quarter: 2010Q2

REPORT INFORMATION
  Report Type: 
  Country: None (occurrence: None)
  Receive Date: 20100622
  Receipt Date: 20100622
  Transmission Date: 20101027
  Serious: Yes (Disabling)
  Sender: FDA-Public Use
  Company Number: None

PATIENT
  Sex: Male

DRUGS (1)
  1. MYSOLINE [Suspect]
     Indication: CONVULSION
     Dosage: 250 MG 1 BID PO
     Route: 048
     Dates: start: 19930526

REACTIONS (4)
  - AFFECT LABILITY [None]
  - IRRITABILITY [None]
  - MENTAL STATUS CHANGES [None]
  - PRODUCT SUBSTITUTION ISSUE [None]
